FAERS Safety Report 15165785 (Version 1)
Quarter: 2018Q3

REPORT INFORMATION
  Report Type: Spontaneous
  Country: AU (occurrence: AU)
  Receive Date: 20180719
  Receipt Date: 20180719
  Transmission Date: 20181010
  Serious: Yes (Other)
  Sender: FDA-Public Use
  Company Number: AU-FRESENIUS KABI-FK201808021

PATIENT
  Age: 84 Year
  Sex: Female

DRUGS (2)
  1. ACYCLOVIR SODIUM (MANUFACTURER UNKNOWN) [Suspect]
     Active Substance: ACYCLOVIR SODIUM
     Indication: VARICELLA ZOSTER VIRUS INFECTION
     Route: 041
  2. ACYCLOVIR SODIUM (MANUFACTURER UNKNOWN) [Suspect]
     Active Substance: ACYCLOVIR SODIUM
     Indication: LUMBOSACRAL PLEXOPATHY

REACTIONS (2)
  - Acute kidney injury [Recovered/Resolved]
  - Nephropathy [Recovered/Resolved]
